FAERS Safety Report 5639920-9 (Version None)
Quarter: 2008Q1

REPORT INFORMATION
  Report Type: 
  Country: None (occurrence: None)
  Receive Date: 20080227
  Receipt Date: 20080227
  Transmission Date: 20080703
  Serious: Yes (Life-Threatening, Hospitalization)
  Sender: FDA-Public Use
  Company Number: None

PATIENT
  Age: 42 Year
  Sex: Female
  Weight: 56.6996 kg

DRUGS (2)
  1. HEPARIN [Suspect]
     Indication: THROMBOSIS
     Dosage: ON AND OFF DAYS
     Dates: start: 20071115, end: 20071119
  2. HEPARIN [Suspect]
     Indication: THROMBOSIS
     Dosage: ON AND OFF DAYS
     Dates: start: 20071204, end: 20071212

REACTIONS (9)
  - DRUG INEFFECTIVE [None]
  - DRUG SPECIFIC ANTIBODY PRESENT [None]
  - DYSPNOEA [None]
  - HAEMORRHAGE [None]
  - HYPERHIDROSIS [None]
  - NAUSEA [None]
  - ORTHOSTATIC HYPOTENSION [None]
  - THROMBOSIS [None]
  - THROMBOSIS IN DEVICE [None]
